FAERS Safety Report 7420786-1 (Version None)
Quarter: 2011Q2

REPORT INFORMATION
  Report Type: 
  Country: None (occurrence: None)
  Receive Date: 20110418
  Receipt Date: 20110414
  Transmission Date: 20111010
  Serious: Yes (Other)
  Sender: FDA-Public Use
  Company Number: US-PFIZER INC-2011082356

PATIENT
  Sex: Female

DRUGS (4)
  1. NARDIL [Suspect]
     Dosage: UNK
  2. NARDIL [Suspect]
     Indication: DEPRESSION
     Dosage: UNK
     Dates: start: 19810101, end: 19950101
  3. ELAVIL [Suspect]
     Indication: DEPRESSION
     Dosage: UNK
  4. SELEGILINE [Suspect]
     Indication: DEPRESSION
     Dosage: UNK
     Route: 062

REACTIONS (4)
  - DRUG INEFFECTIVE [None]
  - DRY EYE [None]
  - ARTHRITIS [None]
  - COELIAC DISEASE [None]
